FAERS Safety Report 10715792 (Version 1)
Quarter: 2015Q1

REPORT INFORMATION
  Report Type: Spontaneous
  Country: US (occurrence: None)
  Receive Date: 20150108
  Receipt Date: 20150108
  Transmission Date: 20150721
  Serious: Yes (Other)
  Sender: FDA-Public Use
  Company Number: 419262

PATIENT
  Sex: Female

DRUGS (3)
  1. LEVEMIR [Suspect]
     Active Substance: INSULIN DETEMIR
     Indication: GESTATIONAL DIABETES
     Route: 058
     Dates: end: 2014
  2. NEXIUM (ESOMEPRAZOPLE MAGNESIUM) [Concomitant]
  3. SINGULAIR (MONTELUKAST SODIUM) [Concomitant]

REACTIONS (2)
  - Exposure during pregnancy [None]
  - Anaphylactic reaction [None]

NARRATIVE: CASE EVENT DATE: 20140711
